FAERS Safety Report 5318689-1 (Version None)
Quarter: 2007Q2

REPORT INFORMATION
  Report Type: 
  Country: None (occurrence: None)
  Receive Date: 20070503
  Receipt Date: 20070503
  Transmission Date: 20071010
  Serious: No
  Sender: FDA-Public Use
  Company Number: None

PATIENT
  Age: 48 Year
  Sex: Female

DRUGS (2)
  1. PAXIL [Suspect]
     Dates: start: 20050525, end: 20050625
  2. NORVASC [Suspect]
     Dates: start: 20050525, end: 20050625

REACTIONS (11)
  - ALANINE AMINOTRANSFERASE INCREASED [None]
  - ASPARTATE AMINOTRANSFERASE INCREASED [None]
  - BLOOD ALKALINE PHOSPHATASE INCREASED [None]
  - BLOOD BILIRUBIN INCREASED [None]
  - CHROMATURIA [None]
  - FATIGUE [None]
  - JAUNDICE [None]
  - LIVER INJURY [None]
  - PRURITUS [None]
  - WEIGHT DECREASED [None]
  - WEIGHT INCREASED [None]
